FAERS Safety Report 6784785-5 (Version None)
Quarter: 2010Q2

REPORT INFORMATION
  Report Type: 
  Country: None (occurrence: None)
  Receive Date: 20100622
  Receipt Date: 20100611
  Transmission Date: 20101027
  Serious: Yes (Hospitalization)
  Sender: FDA-Public Use
  Company Number: PHHY2010FR38498

PATIENT
  Age: 69 Year
  Sex: Female

DRUGS (2)
  1. GLEEVEC [Suspect]
     Indication: CHRONIC MYELOID LEUKAEMIA
     Dosage: 400 MG
  2. LEVOTHYROXINE SODIUM [Concomitant]

REACTIONS (5)
  - BLADDER DILATATION [None]
  - CATHETER PLACEMENT [None]
  - HYSTERECTOMY [None]
  - URINARY RETENTION [None]
  - UTERINE DISORDER [None]
